FAERS Safety Report 8269187-7 (Version None)
Quarter: 2012Q2

REPORT INFORMATION
  Report Type: 
  Country: None (occurrence: None)
  Receive Date: 20120409
  Receipt Date: 20120402
  Transmission Date: 20120825
  Serious: Yes (Hospitalization)
  Sender: FDA-Public Use
  Company Number: PHHY2011ES108979

PATIENT
  Age: 79 Year
  Sex: Male

DRUGS (7)
  1. VITAMIN D [Concomitant]
  2. ALENDRONIC ACID [Suspect]
     Dosage: 70 MG, WEEKLY
     Route: 048
  3. OMEPRAZOLE [Concomitant]
  4. MIRTAZAPINE [Concomitant]
  5. ACETAMINOPHEN [Concomitant]
  6. VITAMIN B-12 [Concomitant]
  7. CALCIUM CARBONATE [Concomitant]

REACTIONS (5)
  - SYNCOPE [None]
  - CHEST DISCOMFORT [None]
  - OESOPHAGEAL STENOSIS [None]
  - OESOPHAGEAL ULCER [None]
  - CHOKING [None]
